FAERS Safety Report 5132982-7 (Version None)
Quarter: 2006Q4

REPORT INFORMATION
  Report Type: 
  Country: None (occurrence: None)
  Receive Date: 20061023
  Receipt Date: 20061010
  Transmission Date: 20070319
  Serious: Yes (Hospitalization)
  Sender: FDA-Public Use
  Company Number: US-KINGPHARMUSA00001-K200601283

PATIENT
  Age: 77 Year
  Sex: Male

DRUGS (5)
  1. ALTACE [Suspect]
     Indication: HYPERTENSION
     Dosage: 1.25 MG, QD
     Route: 048
     Dates: start: 20060823, end: 20060913
  2. TAHOR [Concomitant]
     Dosage: 20 MG, QD
     Route: 048
  3. CORDARONE /00133102/ [Concomitant]
     Indication: ATRIAL FIBRILLATION
     Dosage: 200 MG, QD
     Route: 048
  4. CALCIPARINE [Concomitant]
     Dosage: .6 ML, QD
     Route: 058
  5. CHLORAMINOPHENE [Concomitant]
     Indication: CHRONIC LYMPHOCYTIC LEUKAEMIA

REACTIONS (2)
  - DYSGLOBULINAEMIA [None]
  - NEUTROPENIA [None]
